FAERS Safety Report 10521717 (Version 1)
Quarter: 2014Q4

REPORT INFORMATION
  Report Type: Spontaneous
  Country: US (occurrence: None)
  Receive Date: 20141014
  Receipt Date: 20141014
  Transmission Date: 20150528
  Serious: Yes (Hospitalization)
  Sender: FDA-Public Use
  Company Number: 2014SA136192

PATIENT
  Age: 21 Year
  Sex: Female

DRUGS (1)
  1. ICY HOT POWER GEL [Suspect]
     Active Substance: MENTHOL
     Indication: BACK PAIN

REACTIONS (2)
  - Pain [None]
  - Chemical injury [None]
